FAERS Safety Report 5946087-6 (Version None)
Quarter: 2008Q4

REPORT INFORMATION
  Report Type: 
  Country: None (occurrence: None)
  Receive Date: 20081110
  Receipt Date: 20081027
  Transmission Date: 20090506
  Serious: Yes (Hospitalization)
  Sender: FDA-Public Use
  Company Number: US-ROCHE-594329

PATIENT
  Age: 56 Year
  Sex: Female

DRUGS (6)
  1. BONIVA [Suspect]
     Indication: OSTEOPENIA
     Route: 065
     Dates: start: 20080815
  2. MULTIVITAMIN NOS [Concomitant]
  3. CENTRUM SILVER [Concomitant]
  4. CALCIUM/VITAMIN D [Concomitant]
     Dosage: DOSAGE: 2 DOSE FORMS DAILY
  5. SYNTHROID [Concomitant]
  6. CARDIZEM [Concomitant]

REACTIONS (7)
  - CROHN'S DISEASE [None]
  - FATIGUE [None]
  - MUSCLE SPASMS [None]
  - OXYGEN SATURATION DECREASED [None]
  - PAIN IN EXTREMITY [None]
  - PARAESTHESIA [None]
  - VIRAL INFECTION [None]
